FAERS Safety Report 14902676 (Version 2)
Quarter: 2021Q1

REPORT INFORMATION
  Report Type: Report from Study
  Country: BR (occurrence: BR)
  Receive Date: 20180516
  Receipt Date: 20210223
  Transmission Date: 20210419
  Serious: Yes (Hospitalization)
  Sender: FDA-Public Use
  Company Number: BR-ALEXION-A201805323

PATIENT
  Sex: Male

DRUGS (3)
  1. SOLIRIS [Suspect]
     Active Substance: ECULIZUMAB
     Dosage: 900 MG,QW
     Route: 042
     Dates: start: 20170904, end: 20170929
  2. SOLIRIS [Suspect]
     Active Substance: ECULIZUMAB
     Indication: ATYPICAL HAEMOLYTIC URAEMIC SYNDROME
     Dosage: 900 MG,QW
     Route: 042
     Dates: start: 20170904
  3. SOLIRIS [Suspect]
     Active Substance: ECULIZUMAB
     Dosage: 1200 MG, Q2W
     Route: 042
     Dates: start: 20171006

REACTIONS (7)
  - Vomiting [Recovering/Resolving]
  - Abdominal distension [Unknown]
  - Malaise [Unknown]
  - Diarrhoea [Recovering/Resolving]
  - Abdominal discomfort [Unknown]
  - Swelling [Recovering/Resolving]
  - Colitis [Recovering/Resolving]
